FAERS Safety Report 4834081-8 (Version None)
Quarter: 2005Q4

REPORT INFORMATION
  Report Type: 
  Country: None (occurrence: None)
  Receive Date: 20051115
  Receipt Date: 20051031
  Transmission Date: 20060501
  Serious: No
  Sender: FDA-Public Use
  Company Number: 2005S1009899

PATIENT
  Age: 76 Year
  Sex: Female
  Weight: 72.5755 kg

DRUGS (19)
  1. FENTANYL [Suspect]
     Indication: COMPRESSION FRACTURE
     Dosage: 50 MCG/HR; Q3D; TDER
     Route: 062
     Dates: start: 20050801
  2. FENTANYL [Suspect]
     Indication: OSTEOPOROSIS
     Dosage: 50 MCG/HR; Q3D; TDER
     Route: 062
     Dates: start: 20050801
  3. FENTANYL [Suspect]
     Indication: SURGERY
     Dosage: 50 MCG/HR; Q3D; TDER
     Route: 062
     Dates: start: 20050801
  4. RISEDRONATE SODIUM [Concomitant]
  5. CELECOXIB [Concomitant]
  6. LEVOTHYROXINE SODIUM [Concomitant]
  7. METFORMIN [Concomitant]
  8. NICOTINE [Concomitant]
  9. ESTROGENS CONJUGATED [Concomitant]
  10. PAROXETINE HYDROCHLORIDE [Concomitant]
  11. LANSOPRAZOLE [Concomitant]
  12. MORPHINE SULFATE [Concomitant]
  13. BUPROPION HYDROCHLORIDE [Concomitant]
  14. SALBUTAMOL [Concomitant]
  15. IPRATROPIUM BROMIDE [Concomitant]
  16. TAMSULOSIN HYDROCHLORIDE [Concomitant]
  17. FLUTICASONE PROPIONATE [Concomitant]
  18. FOLIC ACID/CALCIUM PANTOTHENATE/VITAMINS NOS [Concomitant]
  19. CALCIUM GLUCONATE [Concomitant]

REACTIONS (2)
  - DRUG INEFFECTIVE [None]
  - PHARMACEUTICAL PRODUCT COMPLAINT [None]
